FAERS Safety Report 14073356 (Version 2)
Quarter: 2017Q4

REPORT INFORMATION
  Report Type: Spontaneous
  Country: NL (occurrence: NL)
  Receive Date: 20171011
  Receipt Date: 20171128
  Transmission Date: 20180321
  Serious: Yes (Other)
  Sender: FDA-Public Use
  Company Number: NL-BAYER-2017-187585

PATIENT
  Sex: Male

DRUGS (1)
  1. XOFIGO [Suspect]
     Active Substance: RADIUM RA-223 DICHLORIDE
     Dosage: UNK
     Dates: end: 20161107

REACTIONS (6)
  - Metastases to liver [None]
  - Metastases to bone [None]
  - Pelvic pain [None]
  - Oedema [None]
  - Liver function test increased [None]
  - Urinary tract obstruction [None]
